FAERS Safety Report 7146377-8 (Version None)
Quarter: 2010Q4

REPORT INFORMATION
  Report Type: 
  Country: None (occurrence: None)
  Receive Date: 20101208
  Receipt Date: 20100212
  Transmission Date: 20110411
  Serious: No
  Sender: FDA-Public Use
  Company Number: US-BRISTOL-MYERS SQUIBB COMPANY-14975742

PATIENT
  Age: 63 Year
  Sex: Male
  Weight: 102 kg

DRUGS (9)
  1. PRAVACHOL [Suspect]
     Indication: BLOOD CHOLESTEROL INCREASED
     Dates: start: 20000101
  2. PRAVASTATIN SODIUM [Suspect]
     Indication: BLOOD CHOLESTEROL INCREASED
     Dates: end: 20100101
  3. NIACIN [Concomitant]
  4. LOPID [Concomitant]
  5. SAVELLA [Concomitant]
  6. NAPROXEN [Concomitant]
  7. NEURONTIN [Concomitant]
  8. CYMBALTA [Concomitant]
  9. VIMPAT [Concomitant]

REACTIONS (3)
  - ARTHRALGIA [None]
  - NEUROPATHY PERIPHERAL [None]
  - PLANTAR FASCIITIS [None]
